FAERS Safety Report 5529576-8 (Version None)
Quarter: 2007Q4

REPORT INFORMATION
  Report Type: 
  Country: None (occurrence: None)
  Receive Date: 20071129
  Receipt Date: 20071120
  Transmission Date: 20080405
  Serious: Yes (Hospitalization, Other)
  Sender: FDA-Public Use
  Company Number: AT-ASTRAZENECA-2007PK02412

PATIENT
  Age: 15188 Day
  Sex: Female

DRUGS (2)
  1. ZOLADEX [Suspect]
     Indication: BREAST CANCER
     Route: 048
     Dates: start: 20050812
  2. NOLVADEX [Suspect]
     Indication: BREAST CANCER
     Route: 048
     Dates: start: 20050810

REACTIONS (1)
  - UTERINE POLYP [None]
